FAERS Safety Report 9372827 (Version 1)
Quarter: 2013Q2

REPORT INFORMATION
  Report Type: Spontaneous
  Country: IL (occurrence: None)
  Receive Date: 20130610
  Receipt Date: 20130610
  Transmission Date: 20140414
  Serious: Yes (Hospitalization)
  Sender: FDA-Public Use
  Company Number: 2013036269

PATIENT
  Age: 63 Year
  Sex: Male

DRUGS (1)
  1. FVIII [Suspect]
     Indication: FACTOR VIII DEFICIENCY
     Dosage: 2000 IU 2X/WEEK, 2000 IU TOTAL, 1000 IU BID

REACTIONS (1)
  - Acute myocardial infarction [None]
